FAERS Safety Report 12452186 (Version 1)
Quarter: 2016Q2

REPORT INFORMATION
  Report Type: Spontaneous
  Country: FR (occurrence: FR)
  Receive Date: 20160609
  Receipt Date: 20160609
  Transmission Date: 20160815
  Serious: Yes (Other)
  Sender: FDA-Public Use
  Company Number: FR-JNJFOC-20130917550

PATIENT
  Age: 40 Year
  Sex: Male

DRUGS (3)
  1. RISPERDAL [Suspect]
     Active Substance: RISPERIDONE
     Indication: PRODUCT USED FOR UNKNOWN INDICATION
     Route: 065
     Dates: start: 20061126
  2. RISPERDAL [Suspect]
     Active Substance: RISPERIDONE
     Indication: PRODUCT USED FOR UNKNOWN INDICATION
     Route: 048
     Dates: start: 20061126, end: 20070104
  3. RISPERDAL [Suspect]
     Active Substance: RISPERIDONE
     Indication: PRODUCT USED FOR UNKNOWN INDICATION
     Dosage: DOSE INCREASED UNTIL 16MG AT THE END OF TREATMENT.
     Route: 065
     Dates: end: 20070104

REACTIONS (12)
  - Spinal column injury [Unknown]
  - Ear disorder [Not Recovered/Not Resolved]
  - Burning sensation [Not Recovered/Not Resolved]
  - Cognitive disorder [Unknown]
  - Glossodynia [Not Recovered/Not Resolved]
  - Incorrect dose administered [Unknown]
  - Dysgeusia [Unknown]
  - Tremor [Not Recovered/Not Resolved]
  - Back pain [Unknown]
  - Dyspnoea [Unknown]
  - Claustrophobia [None]
  - Visual impairment [Unknown]
